FAERS Safety Report 10162405 (Version 1)
Quarter: 2014Q2

REPORT INFORMATION
  Report Type: Spontaneous
  Country: GB (occurrence: None)
  Receive Date: 20140507
  Receipt Date: 20140507
  Transmission Date: 20141212
  Serious: Yes (Disabling, Other)
  Sender: FDA-Public Use
  Company Number: AUR-APL-2014-05266

PATIENT
  Age: 45 Year
  Sex: Female
  Weight: 50 kg

DRUGS (8)
  1. CIPROFLOXACIN [Suspect]
     Indication: URINARY TRACT INFECTION
     Route: 048
     Dates: start: 20140409, end: 20140411
  2. DIAZEPAM (DIAZEPAM) [Concomitant]
  3. DOMPERIDONE (DOMPERIDONE) [Concomitant]
  4. MADOPAR (MADOPAR) [Concomitant]
  5. MIRTAZAPINE (MIRTAZAPINE) [Concomitant]
  6. PROPANOLOL (PROPANOLOL) [Concomitant]
  7. SAPROPTERIN (SAPROPTERIN) [Concomitant]
  8. TRAMADOL (TRAMADOL) [Concomitant]

REACTIONS (7)
  - Anxiety [None]
  - Palpitations [None]
  - Dyskinesia [None]
  - Heart rate increased [None]
  - Asthenia [None]
  - Fear [None]
  - Cardiac flutter [None]
